FAERS Safety Report 26123345 (Version 1)
Quarter: 2025Q4

REPORT INFORMATION
  Report Type: Spontaneous
  Country: US (occurrence: US)
  Receive Date: 20251204
  Receipt Date: 20251204
  Transmission Date: 20260117
  Serious: No
  Sender: JOHNSON AND JOHNSON
  Company Number: US-JNJFOC-20251165275

PATIENT
  Age: 62 Year
  Sex: Male

DRUGS (1)
  1. TALQUETAMAB [Suspect]
     Active Substance: TALQUETAMAB
     Indication: Plasma cell myeloma
     Route: 058

REACTIONS (4)
  - Dysphagia [Unknown]
  - Pain [Unknown]
  - Oral mucosal erythema [Unknown]
  - Product dose omission issue [Unknown]
